FAERS Safety Report 4451157-8 (Version None)
Quarter: 2004Q3

REPORT INFORMATION
  Report Type: 
  Country: None (occurrence: None)
  Receive Date: 20040916
  Receipt Date: 20040909
  Transmission Date: 20050211
  Serious: Yes (Hospitalization)
  Sender: FDA-Public Use
  Company Number: 200412062DE

PATIENT
  Sex: Female

DRUGS (1)
  1. LANTUS [Suspect]
     Indication: DIABETES MELLITUS
     Route: 058

REACTIONS (4)
  - DRUG EXPOSURE DURING PREGNANCY [None]
  - HEPATITIS B [None]
  - INTRA-UTERINE DEATH [None]
  - PREGNANCY [None]
